FAERS Safety Report 4428314-X (Version None)
Quarter: 2004Q3

REPORT INFORMATION
  Report Type: 
  Country: None (occurrence: None)
  Receive Date: 20040818
  Receipt Date: 20040806
  Transmission Date: 20050211
  Serious: Yes (Death)
  Sender: FDA-Public Use
  Company Number: US-JNJFOC-20040802330

PATIENT
  Sex: Female
  Weight: 125.19 kg

DRUGS (18)
  1. INFLIXIMAB [Suspect]
     Indication: RHEUMATOID ARTHRITIS
     Route: 042
  2. PROMETHAZINE [Concomitant]
  3. SINGULAIR [Concomitant]
  4. HYDROCHLOROTHIAZIDE [Concomitant]
  5. DOXAZOSIN [Concomitant]
  6. CELEBREX [Concomitant]
  7. NEURONTIN [Concomitant]
  8. FUROSEMIDE [Concomitant]
  9. ACTONEL [Concomitant]
  10. FLONASE [Concomitant]
  11. TRAMADOL HCL [Concomitant]
  12. SUCRALFATE [Concomitant]
  13. MICARDIS [Concomitant]
  14. FLUOXETINE [Concomitant]
  15. CLONIDINE HCL [Concomitant]
  16. METOCLOPRAMIDE [Concomitant]
  17. ARAVA [Concomitant]
  18. ENBREL [Concomitant]

REACTIONS (1)
  - DEATH [None]
